FAERS Safety Report 9030791 (Version 1)
Quarter: 2013Q1

REPORT INFORMATION
  Report Type: Spontaneous
  Country: US (occurrence: US)
  Receive Date: 20130123
  Receipt Date: 20130123
  Transmission Date: 20140127
  Serious: Yes (Hospitalization, Other)
  Sender: FDA-Public Use
  Company Number: US-ROCHE-1148912

PATIENT
  Age: 16 None
  Sex: Female

DRUGS (1)
  1. ACCUTANE [Suspect]
     Indication: ACNE
     Route: 065
     Dates: start: 2006, end: 2007

REACTIONS (8)
  - Crohn^s disease [Unknown]
  - Inflammatory bowel disease [Unknown]
  - Arthralgia [Unknown]
  - Depression [Unknown]
  - Anal fistula [Recovering/Resolving]
  - Anal fissure [Unknown]
  - Rectal abscess [Unknown]
  - Irritable bowel syndrome [Unknown]
